FAERS Safety Report 19451311 (Version 1)
Quarter: 2021Q2

REPORT INFORMATION
  Report Type: Spontaneous
  Country: RU (occurrence: RU)
  Receive Date: 20210623
  Receipt Date: 20210623
  Transmission Date: 20210717
  Serious: Yes (Death)
  Sender: FDA-Public Use
  Company Number: RU-ROCHE-2853277

PATIENT
  Age: 63 Year
  Sex: Male

DRUGS (7)
  1. TOCILIZUMAB. [Suspect]
     Active Substance: TOCILIZUMAB
     Indication: TUBERCULOSIS
     Route: 065
     Dates: start: 20200325, end: 20200918
  2. TOFACITINIB [Suspect]
     Active Substance: TOFACITINIB
     Indication: TUBERCULOSIS
     Route: 065
     Dates: start: 20210411
  3. METHOTREXATE. [Suspect]
     Active Substance: METHOTREXATE
     Indication: TUBERCULOSIS
     Route: 065
  4. ADALIMUMAB [Suspect]
     Active Substance: ADALIMUMAB
     Indication: TUBERCULOSIS
     Route: 065
     Dates: start: 20200325, end: 20200918
  5. SALAZOPYRINE [Suspect]
     Active Substance: SULFASALAZINE
     Indication: TUBERCULOSIS
     Route: 065
  6. LEFLUNOMIDE. [Suspect]
     Active Substance: LEFLUNOMIDE
     Indication: TUBERCULOSIS
     Route: 065
  7. ETANERCEPT [Suspect]
     Active Substance: ETANERCEPT
     Indication: TUBERCULOSIS
     Route: 065
     Dates: start: 20200325, end: 20200918

REACTIONS (2)
  - Coronavirus infection [Fatal]
  - Drug ineffective [Unknown]
